FAERS Safety Report 13723070 (Version 1)
Quarter: 2017Q3

REPORT INFORMATION
  Report Type: Spontaneous
  Country: US (occurrence: US)
  Receive Date: 20170706
  Receipt Date: 20170706
  Transmission Date: 20171127
  Serious: No
  Sender: FDA-Public Use
  Company Number: US-JNJFOC-20161003759

PATIENT
  Age: 92 Year
  Sex: Female
  Weight: 65.32 kg

DRUGS (13)
  1. VIT C ROSEHIP [Concomitant]
     Indication: ARTHROPATHY
     Route: 065
  2. IMODIUM A-D [Suspect]
     Active Substance: LOPERAMIDE HYDROCHLORIDE
     Route: 048
  3. FOLIC ACID. [Concomitant]
     Active Substance: FOLIC ACID
     Indication: ARTHROPATHY
     Route: 065
  4. CORAL CALCIUM [Concomitant]
     Indication: ARTHROPATHY
     Route: 065
  5. ALOE VERA [Concomitant]
     Active Substance: ALOE VERA LEAF
     Indication: ARTHROPATHY
     Route: 065
  6. ZINC. [Concomitant]
     Active Substance: ZINC
     Indication: ARTHROPATHY
     Route: 065
  7. SINVASTATINA [Concomitant]
     Active Substance: SIMVASTATIN
     Indication: ARTHRALGIA
     Route: 065
  8. MELATONIN [Concomitant]
     Active Substance: MELATONIN
     Indication: SLEEP DISORDER
     Dosage: PER NIGHT
     Route: 065
  9. ENSURE [Concomitant]
     Active Substance: AMINO ACIDS\DEXTROSE\ELECTROLYTES NOS\SOYBEAN OIL\VITAMINS
     Indication: WEIGHT DECREASED
     Route: 065
  10. IMODIUM A-D [Suspect]
     Active Substance: LOPERAMIDE HYDROCHLORIDE
     Indication: DIARRHOEA
     Route: 048
  11. APRISO [Concomitant]
     Active Substance: MESALAMINE
     Indication: COLITIS ULCERATIVE
     Route: 065
  12. BAYER ASPIRIN [Concomitant]
     Active Substance: ASPIRIN
     Indication: ARTHRALGIA
     Route: 065
  13. CALTRATE [Concomitant]
     Active Substance: CALCIUM CARBONATE
     Indication: ARTHROPATHY
     Route: 065

REACTIONS (1)
  - Drug ineffective [Unknown]
